FAERS Safety Report 17675753 (Version 1)
Quarter: 2020Q2

REPORT INFORMATION
  Report Type: Spontaneous
  Country: US (occurrence: US)
  Receive Date: 20200415
  Receipt Date: 20200415
  Transmission Date: 20200714
  Serious: No
  Sender: FDA-Public Use
  Company Number: None

PATIENT
  Sex: Female

DRUGS (3)
  1. XELJANZ [Suspect]
     Active Substance: TOFACITINIB CITRATE
     Indication: RHEUMATOID ARTHRITIS
     Route: 048
     Dates: start: 20200313
  2. CEPHALEXIN. [Concomitant]
     Active Substance: CEPHALEXIN
  3. IRON [Concomitant]
     Active Substance: IRON

REACTIONS (5)
  - Urinary tract infection [None]
  - Peripheral swelling [None]
  - Condition aggravated [None]
  - Oral disorder [None]
  - Pain [None]
